FAERS Safety Report 7686123-2 (Version None)
Quarter: 2011Q3

REPORT INFORMATION
  Report Type: 
  Country: None (occurrence: None)
  Receive Date: 20110816
  Receipt Date: 20110805
  Transmission Date: 20111222
  Serious: Yes (Other)
  Sender: FDA-Public Use
  Company Number: PHEH2011US00845

PATIENT
  Sex: Male

DRUGS (15)
  1. ASPIRIN [Concomitant]
     Dosage: 81 MG, QD
  2. LANTUS [Concomitant]
  3. FERROUS SULFATE TAB [Concomitant]
     Dosage: 25 MG, PER DAY
  4. VITAMIN E [Concomitant]
     Dosage: 400 IU, PER DAY
  5. HYDROCHLOROTHIAZIDE [Concomitant]
     Dosage: 12.5 MG, QD
  6. LIPITOR [Concomitant]
     Dosage: 10 MG, QD
  7. DIOVAN [Concomitant]
     Dosage: 320 MG, QD
  8. ASCORBIC ACID [Concomitant]
     Dosage: 1000 MG, PER DAY
  9. CARDURA [Concomitant]
     Dosage: 8 MG, QD
  10. VITAMIN D [Concomitant]
     Dosage: 1000 MG, PER DAY
  11. AFINITOR [Suspect]
     Indication: RENAL CELL CARCINOMA
     Dosage: 10 MG, PER DAY
     Route: 048
  12. NORVASC [Concomitant]
     Dosage: 5 MG, BID
  13. LEVOTHYROXINE SODIUM [Concomitant]
     Dosage: 0.1 MG, QD
  14. HUMALOG [Concomitant]
     Dosage: UNK UKN, UNK
  15. VITAMINS NOS [Concomitant]

REACTIONS (7)
  - DYSPEPSIA [None]
  - MOUTH ULCERATION [None]
  - HAEMOGLOBIN DECREASED [None]
  - DRUG INTOLERANCE [None]
  - ASTHENIA [None]
  - BLOOD IRON DECREASED [None]
  - FATIGUE [None]
